FAERS Safety Report 9880844 (Version 1)
Quarter: 2014Q1

REPORT INFORMATION
  Report Type: Spontaneous
  Country: US (occurrence: US)
  Receive Date: 20140207
  Receipt Date: 20140207
  Transmission Date: 20141002
  Serious: No
  Sender: FDA-Public Use
  Company Number: US-PFIZER INC-2014034576

PATIENT
  Age: 80 Year
  Sex: Male

DRUGS (1)
  1. SUTENT [Suspect]
     Dosage: UNK

REACTIONS (4)
  - Diarrhoea [Unknown]
  - Nausea [Unknown]
  - Vomiting [Unknown]
  - Viral infection [Unknown]
